FAERS Safety Report 16274144 (Version 5)
Quarter: 2019Q4

REPORT INFORMATION
  Report Type: Report from Study
  Country: US (occurrence: US)
  Receive Date: 20190504
  Receipt Date: 20191018
  Transmission Date: 20200122
  Serious: Yes (Other)
  Sender: FDA-Public Use
  Company Number: US-ROCHE-2311898

PATIENT
  Age: 56 Year
  Sex: Male
  Weight: 95.34 kg

DRUGS (4)
  1. OCREVUS [Suspect]
     Active Substance: OCRELIZUMAB
     Dosage: MAINTENANCE DOSE, FULL DOSE: OCT/2018
     Route: 065
     Dates: start: 20190412
  2. DALFAMPRIDINE. [Concomitant]
     Active Substance: DALFAMPRIDINE
     Route: 065
     Dates: start: 201712
  3. METOPROLOL. [Concomitant]
     Active Substance: METOPROLOL
     Indication: HYPERTENSION
     Dosage: ONGOING: YES
     Route: 065
     Dates: start: 201608
  4. OCREVUS [Suspect]
     Active Substance: OCRELIZUMAB
     Indication: PRIMARY PROGRESSIVE MULTIPLE SCLEROSIS
     Dosage: TWO SPLIT DOSES IN MAR/2019
     Route: 042
     Dates: start: 201803

REACTIONS (7)
  - Memory impairment [Not Recovered/Not Resolved]
  - Urinary tract infection [Recovered/Resolved]
  - Paralysis [Recovered/Resolved]
  - Influenza [Recovered/Resolved]
  - Pyrexia [Recovered/Resolved]
  - Immobile [Not Recovered/Not Resolved]
  - Multiple sclerosis relapse [Recovered/Resolved]

NARRATIVE: CASE EVENT DATE: 201803
